FAERS Safety Report 18257299 (Version 1)
Quarter: 2020Q3

REPORT INFORMATION
  Report Type: Report from Study
  Country: GB (occurrence: GB)
  Receive Date: 20200911
  Receipt Date: 20200911
  Transmission Date: 20201103
  Serious: Yes (Death, Life-Threatening)
  Sender: FDA-Public Use
  Company Number: GB-PFIZER INC-2020349778

PATIENT
  Age: 65 Year
  Sex: Male

DRUGS (15)
  1. STREPTOKINASE [Suspect]
     Active Substance: STREPTOKINASE
     Indication: CARDIAC ARREST
  2. DIPYRIDAMOLE. [Suspect]
     Active Substance: DIPYRIDAMOLE
     Indication: VENTRICULAR FIBRILLATION
  3. AMIODARONE [Suspect]
     Active Substance: AMIODARONE
     Indication: VENTRICULAR FIBRILLATION
  4. DOBUTAMINE HCL [Suspect]
     Active Substance: DOBUTAMINE HYDROCHLORIDE
     Indication: CARDIAC ARREST
  5. STREPTOKINASE [Suspect]
     Active Substance: STREPTOKINASE
     Indication: VENTRICULAR FIBRILLATION
  6. AMIODARONE [Suspect]
     Active Substance: AMIODARONE
     Indication: CARDIAC ARREST
  7. DOPAMINE HCL [Suspect]
     Active Substance: DOPAMINE HYDROCHLORIDE
     Indication: VENTRICULAR FIBRILLATION
     Dosage: UNK
     Route: 042
  8. DOBUTAMINE HCL [Suspect]
     Active Substance: DOBUTAMINE HYDROCHLORIDE
     Indication: VENTRICULAR FIBRILLATION
     Dosage: UNK
     Route: 042
  9. STREPTOKINASE [Suspect]
     Active Substance: STREPTOKINASE
     Indication: PULMONARY OEDEMA
     Dosage: UNK
  10. DIPYRIDAMOLE. [Suspect]
     Active Substance: DIPYRIDAMOLE
     Indication: PULMONARY OEDEMA
  11. DOBUTAMINE HCL [Suspect]
     Active Substance: DOBUTAMINE HYDROCHLORIDE
     Indication: PULMONARY OEDEMA
  12. DOPAMINE HCL [Suspect]
     Active Substance: DOPAMINE HYDROCHLORIDE
     Indication: CARDIAC ARREST
  13. DIPYRIDAMOLE. [Suspect]
     Active Substance: DIPYRIDAMOLE
     Indication: CARDIAC ARREST
     Dosage: UNK
  14. AMIODARONE [Suspect]
     Active Substance: AMIODARONE
     Indication: PULMONARY OEDEMA
     Dosage: UNK
  15. DOPAMINE HCL [Suspect]
     Active Substance: DOPAMINE HYDROCHLORIDE
     Indication: PULMONARY OEDEMA

REACTIONS (1)
  - Hypotension [Fatal]
